FAERS Safety Report 4967535-4 (Version None)
Quarter: 2006Q2

REPORT INFORMATION
  Report Type: 
  Country: None (occurrence: None)
  Receive Date: 20060410
  Receipt Date: 20060331
  Transmission Date: 20061013
  Serious: Yes (Other)
  Sender: FDA-Public Use
  Company Number: 13324116

PATIENT
  Age: 48 Year
  Sex: Female

DRUGS (3)
  1. ZIDOVUDINE [Suspect]
     Indication: HIV INFECTION
     Dates: start: 20030412
  2. DIDANOSINE [Suspect]
     Indication: HIV INFECTION
     Dates: start: 20030412
  3. NEVIRAPINE [Suspect]
     Indication: HIV INFECTION
     Dates: start: 20030412

REACTIONS (1)
  - GAMMA-GLUTAMYLTRANSFERASE INCREASED [None]
